FAERS Safety Report 9519441 (Version 1)
Quarter: 2013Q3

REPORT INFORMATION
  Report Type: Spontaneous
  Country: US (occurrence: US)
  Receive Date: 20130912
  Receipt Date: 20130912
  Transmission Date: 20140515
  Serious: Yes (Hospitalization)
  Sender: FDA-Public Use
  Company Number: US-GLAXOSMITHKLINE-B0729179A

PATIENT
  Age: 63 Year
  Sex: Female
  Weight: 106.4 kg

DRUGS (1)
  1. AVANDIA [Suspect]
     Indication: DIABETES MELLITUS
     Dosage: 8MG PER DAY
     Route: 048
     Dates: start: 2002, end: 2007

REACTIONS (3)
  - Cardiovascular disorder [Unknown]
  - Acute myocardial infarction [Unknown]
  - Myocardial ischaemia [Unknown]
